FAERS Safety Report 7549071-4 (Version None)
Quarter: 2011Q2

REPORT INFORMATION
  Report Type: 
  Country: None (occurrence: None)
  Receive Date: 20110615
  Receipt Date: 20110609
  Transmission Date: 20111010
  Serious: Yes (Hospitalization)
  Sender: FDA-Public Use
  Company Number: FR-PFIZER INC-FR-WYE-G06716710

PATIENT
  Age: 46 Year
  Sex: Female

DRUGS (3)
  1. APROVEL [Concomitant]
     Dosage: UNK
     Route: 048
     Dates: start: 20091201
  2. ACETAMINOPHEN [Suspect]
     Dosage: 1 DF, 1X/DAY
     Route: 048
     Dates: start: 20100624, end: 20100624
  3. IBUPROFEN [Suspect]
     Dosage: 1 TABLET, 1X/DAY
     Route: 048
     Dates: start: 20100624, end: 20100624

REACTIONS (6)
  - HYPERHIDROSIS [None]
  - MALAISE [None]
  - PRURITUS [None]
  - URTICARIA [None]
  - BLOOD PRESSURE DECREASED [None]
  - TONGUE OEDEMA [None]
